FAERS Safety Report 6165991-X (Version None)
Quarter: 2009Q2

REPORT INFORMATION
  Report Type: 
  Country: None (occurrence: None)
  Receive Date: 20090422
  Receipt Date: 20090408
  Transmission Date: 20091009
  Serious: Yes (Other)
  Sender: FDA-Public Use
  Company Number: CLOF-1000501

PATIENT
  Age: 74 Year
  Sex: Male

DRUGS (5)
  1. CLOLAR [Suspect]
     Indication: NON-HODGKIN'S LYMPHOMA
     Dosage: 40 MG/M2, QDX5, INTRAVENOUS
     Route: 042
  2. PEGFILGRASTIM [Concomitant]
  3. TRIMETHOPRIM + SULFAMETHOXAZOLE [Concomitant]
  4. FLUCONAZOLE [Concomitant]
  5. CIPROFLOXACIN [Concomitant]

REACTIONS (3)
  - BONE MARROW FAILURE [None]
  - NODAL MARGINAL ZONE B-CELL LYMPHOMA STAGE I [None]
  - ORTHOSTATIC HYPOTENSION [None]
